FAERS Safety Report 7889345-0 (Version None)
Quarter: 2011Q4

REPORT INFORMATION
  Report Type: 
  Country: None (occurrence: None)
  Receive Date: 20111103
  Receipt Date: 20100921
  Transmission Date: 20120403
  Serious: No
  Sender: FDA-Public Use
  Company Number: US-BAYER-201034408NA

PATIENT
  Sex: Female

DRUGS (1)
  1. AVELOX [Suspect]
     Dosage: UNK UNK, UNK
     Route: 048

REACTIONS (2)
  - MUSCULOSKELETAL PAIN [None]
  - PAIN IN EXTREMITY [None]
